FAERS Safety Report 20987030 (Version 1)
Quarter: 2022Q2

REPORT INFORMATION
  Report Type: Spontaneous
  Country: None (occurrence: PL)
  Receive Date: 20220621
  Receipt Date: 20220621
  Transmission Date: 20220721
  Serious: Yes (Other)
  Sender: FDA-Public Use
  Company Number: PL-Ascend Therapeutics US, LLC-2130095

PATIENT
  Age: 38 Year
  Sex: Female

DRUGS (11)
  1. ESTROGEL [Suspect]
     Active Substance: ESTRADIOL
     Indication: Product used for unknown indication
     Route: 065
     Dates: start: 20210305
  2. ESTROGEL [Suspect]
     Active Substance: ESTRADIOL
  3. ESTRADIOL [Suspect]
     Active Substance: ESTRADIOL
     Route: 065
     Dates: start: 20210305
  4. VITAMIN D3 [Suspect]
     Active Substance: CHOLECALCIFEROL
     Route: 065
  5. DENOSUMAB [Suspect]
     Active Substance: DENOSUMAB
     Route: 058
     Dates: start: 202104
  6. GONADORELIN DIACETATE TETRAHYDRATE [Suspect]
     Active Substance: GONADORELIN DIACETATE TETRAHYDRATE
     Route: 058
     Dates: start: 202112
  7. CALCIUM [Suspect]
     Active Substance: CALCIUM
     Route: 065
  8. ZOLEDRONIC ACID [Suspect]
     Active Substance: ZOLEDRONIC ACID
     Route: 042
  9. KISQALI [Suspect]
     Active Substance: RIBOCICLIB
     Route: 065
  10. KISQALI [Suspect]
     Active Substance: RIBOCICLIB
     Route: 065
  11. LETROZOLE [Suspect]
     Active Substance: LETROZOLE
     Route: 065
     Dates: start: 202112

REACTIONS (4)
  - Alanine aminotransferase increased [Recovering/Resolving]
  - Neutropenia [Recovered/Resolved]
  - Aspartate aminotransferase increased [Recovering/Resolving]
  - Hepatic steatosis [Unknown]

NARRATIVE: CASE EVENT DATE: 20211201
